FAERS Safety Report 17758869 (Version 3)
Quarter: 2020Q2

REPORT INFORMATION
  Report Type: Spontaneous
  Country: US (occurrence: US)
  Receive Date: 20200508
  Receipt Date: 20200605
  Transmission Date: 20200714
  Serious: Yes (Other)
  Sender: FDA-Public Use
  Company Number: US-AMGEN-USASP2020074946

PATIENT
  Age: 52 Year
  Sex: Female
  Weight: 83.46 kg

DRUGS (1)
  1. ENBREL [Suspect]
     Active Substance: ETANERCEPT
     Indication: RHEUMATOID ARTHRITIS
     Dosage: 500 MG, WEEKLY
     Route: 030
     Dates: start: 201906, end: 201906

REACTIONS (9)
  - Injection site ulcer [Recovered/Resolved with Sequelae]
  - Incorrect route of product administration [Unknown]
  - Product use issue [Unknown]
  - Drug ineffective [Recovered/Resolved with Sequelae]
  - Pyrexia [Recovered/Resolved with Sequelae]
  - Angioedema [Recovered/Resolved with Sequelae]
  - Lupus-like syndrome [Recovered/Resolved with Sequelae]
  - Urticaria [Recovered/Resolved with Sequelae]
  - Off label use [Unknown]

NARRATIVE: CASE EVENT DATE: 201906
